FAERS Safety Report 15292565 (Version 1)
Quarter: 2018Q3

REPORT INFORMATION
  Report Type: Spontaneous
  Country: US (occurrence: US)
  Receive Date: 20180818
  Receipt Date: 20180818
  Transmission Date: 20181010
  Serious: No
  Sender: FDA-Public Use
  Company Number: US-TEVA-2018-US-944243

PATIENT
  Sex: Female

DRUGS (1)
  1. LIDOCAINE. [Suspect]
     Active Substance: LIDOCAINE
     Indication: ANALGESIC THERAPY
     Dosage: DOSE STRENGTH:  5%
     Route: 061
     Dates: start: 2013

REACTIONS (5)
  - Neck injury [Unknown]
  - Urticaria [Unknown]
  - Back injury [Unknown]
  - Hypoaesthesia [Unknown]
  - Erythema [Unknown]

NARRATIVE: CASE EVENT DATE: 20180805
